FAERS Safety Report 19192951 (Version 2)
Quarter: 2021Q2

REPORT INFORMATION
  Report Type: Spontaneous
  Country: US (occurrence: US)
  Receive Date: 20210428
  Receipt Date: 20210518
  Transmission Date: 20210717
  Serious: Yes (Other)
  Sender: FDA-Public Use
  Company Number: US-GW PHARMA-202104USGW02044

PATIENT

DRUGS (4)
  1. EPIDIOLEX [Suspect]
     Active Substance: CANNABIDIOL
     Dosage: 50 MILLIGRAM (TOTAL)
     Route: 048
     Dates: start: 20210411, end: 20210417
  2. EPIDIOLEX [Suspect]
     Active Substance: CANNABIDIOL
     Dosage: 75 MILLIGRAM (TOTAL)
     Route: 048
     Dates: start: 20210418, end: 20210424
  3. EPIDIOLEX [Suspect]
     Active Substance: CANNABIDIOL
     Dosage: 18.24 MG/KG/DAY, 125 MILLIGRAM, BID
     Route: 048
     Dates: start: 20210425
  4. EPIDIOLEX [Suspect]
     Active Substance: CANNABIDIOL
     Indication: EPILEPSY
     Dosage: 25 MILLIGRAM (TOTAL)
     Route: 048
     Dates: start: 20210404, end: 20210410

REACTIONS (1)
  - Seizure [Unknown]

NARRATIVE: CASE EVENT DATE: 202104
